FAERS Safety Report 5927202-7 (Version None)
Quarter: 2008Q4

REPORT INFORMATION
  Report Type: 
  Country: None (occurrence: None)
  Receive Date: 20081022
  Receipt Date: 20081014
  Transmission Date: 20090506
  Serious: Yes (Other)
  Sender: FDA-Public Use
  Company Number: FR-PFIZER INC-2008078569

PATIENT
  Sex: Male
  Weight: 78 kg

DRUGS (1)
  1. CHAMPIX [Suspect]
     Indication: SMOKING CESSATION THERAPY
     Route: 048
     Dates: start: 20080630, end: 20080712

REACTIONS (3)
  - AFFECTIVE DISORDER [None]
  - APATHY [None]
  - DEPRESSED MOOD [None]
